FAERS Safety Report 12181182 (Version 2)
Quarter: 2016Q2

REPORT INFORMATION
  Report Type: Spontaneous
  Country: JP (occurrence: JP)
  Receive Date: 20160315
  Receipt Date: 20160516
  Transmission Date: 20160815
  Serious: Yes (Hospitalization, Disabling, Other)
  Sender: FDA-Public Use
  Company Number: JP-GILEAD-2016-0201701

PATIENT
  Age: 76 Year
  Sex: Male
  Weight: 62 kg

DRUGS (7)
  1. URSODEOXYCHOLIC ACID [Concomitant]
     Active Substance: URSODIOL
     Indication: CHRONIC HEPATITIS C
     Dosage: 600.00 MG, UNK
     Route: 048
     Dates: start: 20110426, end: 20160203
  2. TENELIA [Suspect]
     Active Substance: TENELIGLIPTIN
     Indication: DIABETES MELLITUS
     Dosage: 40.0 MG, UNK
     Route: 048
     Dates: start: 20140220, end: 20160203
  3. AMARYL [Suspect]
     Active Substance: GLIMEPIRIDE
     Indication: DIABETES MELLITUS
     Dosage: 1.00 MG, UNK
     Route: 048
     Dates: start: 20140925, end: 20160203
  4. AMLODIPINE [Suspect]
     Active Substance: AMLODIPINE BESYLATE
     Indication: HYPERTENSION
     Dosage: 5.00 MG, UNK
     Route: 048
     Dates: start: 20120720, end: 20160203
  5. GLYCYRON                           /00466401/ [Concomitant]
     Indication: CHRONIC HEPATITIS C
     Dosage: 3 DF, UNK
     Route: 048
     Dates: start: 20110426, end: 20160203
  6. PROHEPARUM [Concomitant]
     Active Substance: CHOLINE BITARTRATE\CYSTEINE\INOSITOL\MAMMAL LIVER
     Indication: CHRONIC HEPATITIS C
     Dosage: 3.00 DF, UNK
     Route: 048
     Dates: start: 20110426, end: 20160203
  7. HARVONI [Suspect]
     Active Substance: LEDIPASVIR\SOFOSBUVIR
     Indication: CHRONIC HEPATITIS C
     Dosage: 1 DF, UNK
     Route: 048
     Dates: start: 20151216, end: 20160203

REACTIONS (3)
  - Therapy cessation [Unknown]
  - Fall [Unknown]
  - Subdural haematoma [Recovered/Resolved with Sequelae]

NARRATIVE: CASE EVENT DATE: 20160203
